FAERS Safety Report 8236245-2 (Version None)
Quarter: 2012Q1

REPORT INFORMATION
  Report Type: 
  Country: None (occurrence: None)
  Receive Date: 20120327
  Receipt Date: 20120313
  Transmission Date: 20120608
  Serious: Yes (Death, Hospitalization)
  Sender: FDA-Public Use
  Company Number: PHHY2012JP019487

PATIENT
  Age: 54 Year
  Sex: Female

DRUGS (6)
  1. MELPHALAN HYDROCHLORIDE [Concomitant]
  2. FLUDARABINE PHOSPHATE [Concomitant]
  3. BORTEZOMIB [Concomitant]
  4. METHOTREXATE [Concomitant]
     Indication: PROPHYLAXIS AGAINST GRAFT VERSUS HOST DISEASE
  5. DEXAMETHASONE [Concomitant]
  6. CYCLOSPORINE [Suspect]
     Indication: PROPHYLAXIS AGAINST GRAFT VERSUS HOST DISEASE

REACTIONS (9)
  - RESPIRATORY FAILURE [None]
  - IDIOPATHIC PNEUMONIA SYNDROME [None]
  - LIVER DISORDER [None]
  - ACUTE RESPIRATORY DISTRESS SYNDROME [None]
  - DRUG EFFECT DECREASED [None]
  - DIFFUSE ALVEOLAR DAMAGE [None]
  - THROMBOTIC MICROANGIOPATHY [None]
  - PULMONARY ARTERY STENOSIS [None]
  - PULMONARY EMBOLISM [None]
